FAERS Safety Report 23127052 (Version 3)
Quarter: 2024Q1

REPORT INFORMATION
  Report Type: Report from Study
  Country: NL (occurrence: NL)
  Receive Date: 20231030
  Receipt Date: 20240301
  Transmission Date: 20240410
  Serious: Yes (Hospitalization)
  Sender: FDA-Public Use
  Company Number: NL-ABBVIE-5470818

PATIENT
  Sex: Male

DRUGS (19)
  1. CARBIDOPA\LEVODOPA [Suspect]
     Active Substance: CARBIDOPA\LEVODOPA
     Indication: Parkinson^s disease
     Dosage: MD:13.7ML; CD:2.3ML/H; ED:3.5ML LAST DATE 2023
     Route: 050
     Dates: start: 20231029, end: 20240227
  2. CARBIDOPA\LEVODOPA [Suspect]
     Active Substance: CARBIDOPA\LEVODOPA
     Dosage: MD: 13.5ML, CD: 2.3ML/H, ED: 3.5ML
     Route: 050
     Dates: start: 20230927, end: 20231120
  3. CARBIDOPA\LEVODOPA [Suspect]
     Active Substance: CARBIDOPA\LEVODOPA
     Dosage: MD: 13.5ML, CD: 2.4ML/H, ED: 3.0ML?TEXT: REMAINS AT 16 HOURS
     Route: 050
     Dates: start: 20230406, end: 20230425
  4. CARBIDOPA\LEVODOPA [Suspect]
     Active Substance: CARBIDOPA\LEVODOPA
     Dosage: MD: 13.5ML, CD: 2.3ML/H, ED: 3.0ML?TEXT: REMAINS AT 16 HOURS
     Route: 050
     Dates: start: 20230331, end: 20230406
  5. CARBIDOPA\LEVODOPA [Suspect]
     Active Substance: CARBIDOPA\LEVODOPA
     Dosage: TEXT: REMAINS AT 16 HOURS
     Route: 050
     Dates: start: 20230327, end: 202303
  6. CARBIDOPA\LEVODOPA [Suspect]
     Active Substance: CARBIDOPA\LEVODOPA
     Dosage: MD: 13.7ML, CD: 2.5ML/H, ED: 3.5ML?TEXT: REMAINS AT 16 HOURS
     Route: 050
     Dates: start: 20230728, end: 20230927
  7. CARBIDOPA\LEVODOPA [Suspect]
     Active Substance: CARBIDOPA\LEVODOPA
     Dosage: MD:13.7ML; CD:2.3ML/H; ED:3.5ML
     Route: 050
     Dates: start: 20231120, end: 20231129
  8. CARBIDOPA\LEVODOPA [Suspect]
     Active Substance: CARBIDOPA\LEVODOPA
     Dosage: MD: 13.5ML, CD: 2.4ML/H, ED: 3.5ML?TEXT: REMAINS AT 16 HOURS
     Route: 050
     Dates: start: 20230425, end: 20230728
  9. CARBIDOPA\LEVODOPA [Suspect]
     Active Substance: CARBIDOPA\LEVODOPA
     Dosage: MD:13.7ML; CD:2.3ML/H; ED:3.5ML?REMAINS AT 16 HOURS
     Route: 050
     Dates: start: 20240227
  10. ENTACAPONE [Concomitant]
     Active Substance: ENTACAPONE
     Indication: Parkinson^s disease
     Dosage: 200MG ONCE PER DAY AT 10:30AM?FORM STRENGTH: 200 MG
  11. ENTACAPONE [Concomitant]
     Active Substance: ENTACAPONE
     Indication: Parkinson^s disease
     Dosage: IN THE EVENING, TOGETHER WITH THE 2 LEVODOPA TABLETS AS PER NARRATIVE
  12. SINEMET [Concomitant]
     Active Substance: CARBIDOPA\LEVODOPA
     Indication: Parkinson^s disease
     Dosage: ONCE PER DAY 2, AT 10PM
  13. SINEMET [Concomitant]
     Active Substance: CARBIDOPA\LEVODOPA
     Indication: Parkinson^s disease
     Dosage: FORM STRENGTH: 125 MG
  14. SINEMET [Concomitant]
     Active Substance: CARBIDOPA\LEVODOPA
     Indication: Parkinson^s disease
     Dosage: 62.5 MG
  15. SINEMET [Concomitant]
     Active Substance: CARBIDOPA\LEVODOPA
     Indication: Parkinson^s disease
     Dosage: FORM STRENGTH: 125 MG
  16. OMEPRAZOLE [Concomitant]
     Active Substance: OMEPRAZOLE
     Indication: Product used for unknown indication
  17. REQUIP [Concomitant]
     Active Substance: ROPINIROLE HYDROCHLORIDE
     Indication: Parkinson^s disease
  18. SYMMETREL [Concomitant]
     Active Substance: AMANTADINE HYDROCHLORIDE
     Indication: Parkinson^s disease
  19. BENSERAZIDE HYDROCHLORIDE\LEVODOPA [Concomitant]
     Active Substance: BENSERAZIDE HYDROCHLORIDE\LEVODOPA
     Indication: Parkinson^s disease
     Route: 065

REACTIONS (22)
  - Cerebral infarction [Recovered/Resolved]
  - Dyskinesia [Not Recovered/Not Resolved]
  - Muscle rigidity [Recovering/Resolving]
  - Hyperkinesia [Not Recovered/Not Resolved]
  - Stoma site discharge [Not Recovered/Not Resolved]
  - Device breakage [Recovered/Resolved]
  - Gait disturbance [Not Recovered/Not Resolved]
  - Stress [Not Recovered/Not Resolved]
  - Vision blurred [Not Recovered/Not Resolved]
  - Tension [Not Recovered/Not Resolved]
  - Fine motor skill dysfunction [Recovering/Resolving]
  - Asthenia [Recovering/Resolving]
  - On and off phenomenon [Not Recovered/Not Resolved]
  - Fibroma [Not Recovered/Not Resolved]
  - Speech disorder [Not Recovered/Not Resolved]
  - Mobility decreased [Recovering/Resolving]
  - Unevaluable event [Recovering/Resolving]
  - Bradykinesia [Not Recovered/Not Resolved]
  - Memory impairment [Not Recovered/Not Resolved]
  - Urinary tract infection [Recovered/Resolved]
  - General physical health deterioration [Recovered/Resolved]
  - Norovirus infection [Recovered/Resolved]

NARRATIVE: CASE EVENT DATE: 20230101
